FAERS Safety Report 14545000 (Version 3)
Quarter: 2021Q4

REPORT INFORMATION
  Report Type: Report from Study
  Country: FR (occurrence: FR)
  Receive Date: 20180217
  Receipt Date: 20211020
  Transmission Date: 20220303
  Serious: Yes (Other)
  Sender: FDA-Public Use
  Company Number: FR-SHIRE-FR201718516

PATIENT
  Age: 4 Year
  Sex: Male
  Weight: 18.2 kg

DRUGS (6)
  1. METHOTREXATE [Suspect]
     Active Substance: METHOTREXATE
     Indication: Acute lymphocytic leukaemia
     Dosage: 12 MILLIGRAM, QD ( 1X/DAY:QD)
     Route: 037
     Dates: start: 20170605, end: 20170704
  2. METHOTREXATE [Suspect]
     Active Substance: METHOTREXATE
     Dosage: 17.5 MILLIGRAM, QD
     Route: 048
     Dates: start: 20170604, end: 20170710
  3. DEXAMETHASONE [Suspect]
     Active Substance: DEXAMETHASONE
     Indication: Acute lymphocytic leukaemia
     Dosage: 4.2 MILLIGRAM, QD (1X/DAY:QD)
     Route: 048
     Dates: start: 20170604, end: 20170707
  4. PEGASPARGASE [Suspect]
     Active Substance: PEGASPARGASE
     Indication: Acute lymphocytic leukaemia
     Dosage: 1780 INTERNATIONAL UNIT, QD (1X/DAY:QD)
     Route: 042
     Dates: start: 20170611, end: 20170710
  5. VINCRISTINE [Suspect]
     Active Substance: VINCRISTINE
     Indication: Acute lymphocytic leukaemia
     Dosage: 1 MG, 1X/DAY:QD
     Route: 042
     Dates: start: 20170604, end: 20170710
  6. MERCAPTOPURINE [Suspect]
     Active Substance: MERCAPTOPURINE
     Indication: Acute lymphocytic leukaemia
     Dosage: 34 MG, 1X/DAY:QD
     Route: 048
     Dates: start: 20170604, end: 20170710

REACTIONS (1)
  - Hepatic cytolysis [Not Recovered/Not Resolved]

NARRATIVE: CASE EVENT DATE: 20170710
